FAERS Safety Report 22063790 (Version 3)
Quarter: 2023Q2

REPORT INFORMATION
  Report Type: Report from Study
  Country: US (occurrence: US)
  Receive Date: 20230306
  Receipt Date: 20230414
  Transmission Date: 20230721
  Serious: Yes (Hospitalization, Other)
  Sender: FDA-Public Use
  Company Number: US-TAKEDA-US201939820

PATIENT
  Sex: Female
  Weight: 101.59 kg

DRUGS (32)
  1. HUMAN IMMUNOGLOBULIN G [Suspect]
     Active Substance: HUMAN IMMUNOGLOBULIN G
     Indication: Primary immunodeficiency syndrome
     Dosage: 8 GRAM, 1/WEEK
     Route: 065
     Dates: start: 20170501
  2. HUMAN IMMUNOGLOBULIN G [Suspect]
     Active Substance: HUMAN IMMUNOGLOBULIN G
     Indication: Congenital hypogammaglobulinaemia
     Dosage: 8 GRAM, Q2WEEKS
     Route: 058
     Dates: start: 20170504
  3. PREDNISONE [Concomitant]
     Active Substance: PREDNISONE
  4. MIRAPEX [Concomitant]
     Active Substance: PRAMIPEXOLE DIHYDROCHLORIDE
  5. FLONASE [Concomitant]
     Active Substance: FLUTICASONE PROPIONATE
  6. ASPIRIN [Concomitant]
     Active Substance: ASPIRIN
  7. TRAMADOL [Concomitant]
     Active Substance: TRAMADOL
  8. ACETAMINOPHEN [Concomitant]
     Active Substance: ACETAMINOPHEN
  9. DIPHENHYDRAMINE [Concomitant]
     Active Substance: DIPHENHYDRAMINE
  10. LIDOCAINE [Concomitant]
     Active Substance: LIDOCAINE
  11. EPINEPHRINE [Concomitant]
     Active Substance: EPINEPHRINE
  12. CRESTOR [Concomitant]
     Active Substance: ROSUVASTATIN CALCIUM
  13. PROZAC [Concomitant]
     Active Substance: FLUOXETINE HYDROCHLORIDE
  14. DEXILANT [Concomitant]
     Active Substance: DEXLANSOPRAZOLE
  15. TOPAMAX [Concomitant]
     Active Substance: TOPIRAMATE
  16. DOCUSATE SODIUM [Concomitant]
     Active Substance: DOCUSATE SODIUM
  17. LEVAQUIN [Concomitant]
     Active Substance: LEVOFLOXACIN
  18. DIPHENHYDRAMINE HYDROCHLORIDE [Concomitant]
     Active Substance: DIPHENHYDRAMINE HYDROCHLORIDE
  19. VITAMIN D3 [Concomitant]
     Active Substance: CHOLECALCIFEROL
  20. METOPROLOL SUCCINATE [Concomitant]
     Active Substance: METOPROLOL SUCCINATE
  21. EZETIMIBE [Concomitant]
     Active Substance: EZETIMIBE
  22. ZYRTEC [Concomitant]
     Active Substance: CETIRIZINE HYDROCHLORIDE
  23. FLONASE ALLERGY RELIEF [Concomitant]
     Active Substance: FLUTICASONE PROPIONATE
  24. AMOXICILLIN [Concomitant]
     Active Substance: AMOXICILLIN
  25. METFORMIN HYDROCHLORIDE [Concomitant]
     Active Substance: METFORMIN HYDROCHLORIDE
  26. RISEDRONATE SODIUM [Concomitant]
     Active Substance: RISEDRONATE SODIUM
  27. FLUOXETINE HYDROCHLORIDE [Concomitant]
     Active Substance: FLUOXETINE HYDROCHLORIDE
  28. ROSUVASTATIN CALCIUM [Concomitant]
     Active Substance: ROSUVASTATIN CALCIUM
  29. ELIQUIS [Concomitant]
     Active Substance: APIXABAN
  30. OZEMPIC [Concomitant]
     Active Substance: SEMAGLUTIDE
  31. DILTIAZEM [Concomitant]
     Active Substance: DILTIAZEM
  32. MIRALAX [Concomitant]
     Active Substance: POLYETHYLENE GLYCOL 3350

REACTIONS (6)
  - Atrial fibrillation [Unknown]
  - Infusion site erythema [Unknown]
  - Infusion site pain [Unknown]
  - Respiratory disorder [Unknown]
  - Nasopharyngitis [Unknown]
  - Skin exfoliation [Unknown]
